FAERS Safety Report 15550385 (Version 1)
Quarter: 2018Q4

REPORT INFORMATION
  Report Type: Spontaneous
  Country: US (occurrence: US)
  Receive Date: 20181019
  Receipt Date: 20181019
  Transmission Date: 20190205
  Serious: Yes (Other)
  Sender: FDA-Public Use
  Company Number: None

PATIENT
  Age: 47 Year
  Sex: Female
  Weight: 58.97 kg

DRUGS (1)
  1. QUEEN SLIMMING (DIETARY SUPPLEMENT\HERBALS) [Suspect]
     Active Substance: DIETARY SUPPLEMENT\HERBALS
     Indication: WEIGHT CONTROL
     Dates: start: 20180831

REACTIONS (5)
  - Thermal burn [None]
  - Pruritus [None]
  - Furuncle [None]
  - Erythema [None]
  - Rash [None]

NARRATIVE: CASE EVENT DATE: 20180831
